FAERS Safety Report 6895823-3 (Version None)
Quarter: 2010Q3

REPORT INFORMATION
  Report Type: 
  Country: None (occurrence: None)
  Receive Date: 20100802
  Receipt Date: 20100721
  Transmission Date: 20110219
  Serious: Yes (Hospitalization, Other)
  Sender: FDA-Public Use
  Company Number: JP-PFIZER INC-2010091349

PATIENT
  Age: 90 Year
  Sex: Female

DRUGS (2)
  1. LYRICA [Suspect]
     Indication: POST HERPETIC NEURALGIA
     Dosage: 75 MG A DAY, UNK
     Route: 048
  2. LYRICA [Suspect]
     Dosage: 150 MG A DAY, UNK
     Route: 048
     Dates: start: 20100705

REACTIONS (4)
  - DEHYDRATION [None]
  - DELUSION [None]
  - DEMENTIA [None]
  - SOMNOLENCE [None]
